FAERS Safety Report 4841134-7 (Version None)
Quarter: 2005Q4

REPORT INFORMATION
  Report Type: 
  Country: None (occurrence: None)
  Receive Date: 20051130
  Receipt Date: 20051010
  Transmission Date: 20060501
  Serious: No
  Sender: FDA-Public Use
  Company Number: US-BRISTOL-MYERS SQUIBB COMPANY-13140017

PATIENT
  Sex: Female

DRUGS (2)
  1. ABILIFY [Suspect]
     Dosage: TAKING 15 MG DAILY, THEN DOSE INCREASED TO 10 MG TWICE DAILY;CONSUMER STOPPEDDRUG ON OWN ACCORD
     Route: 048
  2. LEXAPRO [Concomitant]

REACTIONS (1)
  - BLEPHAROSPASM [None]
